FAERS Safety Report 5507876-5 (Version None)
Quarter: 2007Q4

REPORT INFORMATION
  Report Type: 
  Country: None (occurrence: None)
  Receive Date: 20071031
  Receipt Date: 20070111
  Transmission Date: 20080405
  Serious: Yes (Hospitalization, Other)
  Sender: FDA-Public Use
  Company Number: 010035

PATIENT
  Age: 24 Year
  Sex: Female
  Weight: 70.3 kg

DRUGS (1)
  1. SEASONALE [Suspect]
     Indication: ORAL CONTRACEPTION
     Dosage: 1 TABLET, QD, ORAL
     Route: 048
     Dates: start: 20040811, end: 20060930

REACTIONS (1)
  - CEREBROVASCULAR ACCIDENT [None]
